FAERS Safety Report 18095084 (Version 6)
Quarter: 2021Q4

REPORT INFORMATION
  Report Type: Report from Study
  Country: None (occurrence: US)
  Receive Date: 20200730
  Receipt Date: 20211201
  Transmission Date: 20220303
  Serious: No
  Sender: FDA-Public Use
  Company Number: US-AKCEA THERAPEUTICS-2020IS001170

PATIENT
  Age: 82 Year
  Sex: Female
  Weight: 64.636 kg

DRUGS (5)
  1. TEGSEDI [Suspect]
     Active Substance: INOTERSEN SODIUM
     Indication: Hereditary neuropathic amyloidosis
     Route: 058
     Dates: start: 20191212
  2. DEVICE [Suspect]
     Active Substance: DEVICE
  3. TEGSEDI [Suspect]
     Active Substance: INOTERSEN SODIUM
     Route: 058
  4. TEGSEDI [Suspect]
     Active Substance: INOTERSEN SODIUM
     Route: 058
  5. TEGSEDI [Suspect]
     Active Substance: INOTERSEN SODIUM
     Route: 058
     Dates: start: 202108, end: 202109

REACTIONS (26)
  - Injection site pain [Unknown]
  - Injection site pruritus [Unknown]
  - Urine protein/creatinine ratio increased [Unknown]
  - Urine leukocyte esterase positive [Unknown]
  - Protein urine present [Unknown]
  - Chills [Recovered/Resolved]
  - Middle insomnia [Not Recovered/Not Resolved]
  - Dry mouth [Not Recovered/Not Resolved]
  - Fatigue [Recovered/Resolved]
  - Blood creatinine abnormal [Unknown]
  - Platelet count decreased [Unknown]
  - Laboratory test abnormal [Unknown]
  - Pyrexia [Recovered/Resolved]
  - Influenza like illness [Recovered/Resolved]
  - Herpes zoster [Unknown]
  - Full blood count abnormal [Unknown]
  - Vomiting [Unknown]
  - Creatinine urine decreased [Unknown]
  - Illness [Unknown]
  - Red blood cells urine positive [Unknown]
  - Bacterial test positive [Unknown]
  - Urinary occult blood positive [Unknown]
  - Tremor [Unknown]
  - Nausea [Recovered/Resolved]
  - Urine abnormality [Unknown]
  - Emotional distress [Recovered/Resolved]

NARRATIVE: CASE EVENT DATE: 20200401
